FAERS Safety Report 10362983 (Version 1)
Quarter: 2014Q1

REPORT INFORMATION
  Report Type: Spontaneous
  Country: US (occurrence: None)
  Receive Date: 20140306
  Receipt Date: 20140306
  Transmission Date: 20141002
  Serious: Yes (Hospitalization)
  Sender: FDA-Public Use
  Company Number: 163-21880-13022065

PATIENT
  Age: 60 Year
  Sex: Female
  Weight: 101.15 kg

DRUGS (9)
  1. REVLIMID (LENALIDOMIDE) (25 MILLIGRAM, CAPSULES) [Suspect]
     Indication: PLASMA CELL MYELOMA
     Route: 048
     Dates: start: 201012
  2. ACYCLOVIR (ACICLOVIR) (UNKNOWN) [Concomitant]
  3. CALCIUM (CALCIUM) (UNKNOWN) [Concomitant]
  4. COUMADIN (WARFARIN SODIUM) (TABLETS) [Concomitant]
  5. DAPSONE (DAPSONE) (TABLETS) [Concomitant]
  6. LYRICA (PREGABALIN) (CAPSULES) [Concomitant]
  7. OXYCODONE HCL (OXYCODONE HYDROCHLORIDE) (CAPSULES) [Concomitant]
  8. SYNTHROID (LEVOTHYROXINE SODIUM) (TABLETS) [Concomitant]
  9. VITAMIN D (ERGOCALCIFEROL) (UNKNOWN) [Concomitant]

REACTIONS (2)
  - Pneumonia [None]
  - Platelet count decreased [None]
